FAERS Safety Report 7369222-4 (Version None)
Quarter: 2011Q1

REPORT INFORMATION
  Report Type: 
  Country: None (occurrence: None)
  Receive Date: 20110323
  Receipt Date: 20110309
  Transmission Date: 20110831
  Serious: Yes (Other)
  Sender: FDA-Public Use
  Company Number: US-AMGEN-USASP2011001471

PATIENT
  Age: 52 Year
  Sex: Female

DRUGS (1)
  1. ENBREL [Suspect]
     Indication: RHEUMATOID ARTHRITIS
     Dosage: 50 MG, QWK
     Dates: start: 20101109, end: 20101229

REACTIONS (10)
  - CHILLS [None]
  - SINUS CONGESTION [None]
  - MALAISE [None]
  - NEURALGIA [None]
  - HYPOAESTHESIA [None]
  - COUGH [None]
  - PARAESTHESIA [None]
  - WHITE BLOOD CELL COUNT INCREASED [None]
  - ULCER [None]
  - PYREXIA [None]
